FAERS Safety Report 6158790-6 (Version None)
Quarter: 2009Q2

REPORT INFORMATION
  Report Type: 
  Country: None (occurrence: None)
  Receive Date: 20090417
  Receipt Date: 20090406
  Transmission Date: 20091009
  Serious: Yes (Hospitalization)
  Sender: FDA-Public Use
  Company Number: US-JNJFOC-20090402952

PATIENT
  Age: 47 Year
  Sex: Female

DRUGS (13)
  1. FLEXERIL [Suspect]
     Route: 048
  2. FLEXERIL [Suspect]
     Indication: DRUG USE FOR UNKNOWN INDICATION
     Dosage: AS NEEDED
     Route: 048
  3. OXYCODONE HCL [Suspect]
     Indication: INSOMNIA
  4. ELAVIL [Concomitant]
  5. GLUCOTROL XL [Concomitant]
  6. GLUCOPHAGE [Concomitant]
  7. NOVOLIN N [Concomitant]
     Dosage: 35 UNITS @ 10PM EVERY DAY
  8. CAPTOPRIL [Concomitant]
  9. ASPIRIN [Concomitant]
  10. LIPITOR [Concomitant]
  11. ZOLOFT [Concomitant]
     Dosage: 100MG, 1/2 PILL ONCE DAILY
  12. NAPROXEN [Concomitant]
     Dosage: AS NEEDED
  13. ALDOMET [Concomitant]
     Route: 048

REACTIONS (2)
  - CEREBROVASCULAR ACCIDENT [None]
  - HYPERTENSION [None]
